FAERS Safety Report 12890589 (Version 1)
Quarter: 2016Q4

REPORT INFORMATION
  Report Type: Spontaneous
  Country: US (occurrence: US)
  Receive Date: 20161027
  Receipt Date: 20161027
  Transmission Date: 20170207
  Serious: No
  Sender: FDA-Public Use
  Company Number: US-JAZZ-2016-US-015712

PATIENT
  Sex: Male

DRUGS (31)
  1. SODIUM SULFACETAMIDE [Concomitant]
     Active Substance: SULFACETAMIDE SODIUM
  2. MECLIZINE [Concomitant]
     Active Substance: MECLIZINE HYDROCHLORIDE
  3. ASPIRIN. [Concomitant]
     Active Substance: ASPIRIN
  4. TESTOSTERONE CYPIONATE. [Concomitant]
     Active Substance: TESTOSTERONE CYPIONATE
  5. CELEXA [Concomitant]
     Active Substance: CITALOPRAM HYDROBROMIDE
  6. ONGLYZA [Concomitant]
     Active Substance: SAXAGLIPTIN HYDROCHLORIDE
  7. XYREM [Suspect]
     Active Substance: SODIUM OXYBATE
     Indication: NARCOLEPSY
     Dosage: 2.25 G, BID
     Route: 048
     Dates: start: 201212, end: 201212
  8. POTASSIUM [Concomitant]
     Active Substance: POTASSIUM
  9. IBUPROFEN. [Concomitant]
     Active Substance: IBUPROFEN
  10. HYDROCODONE BITARTRATE AND ACETAMINOPHEN [Concomitant]
     Active Substance: ACETAMINOPHEN\HYDROCODONE BITARTRATE
  11. MORPHINE SULF [Concomitant]
     Active Substance: MORPHINE SULFATE
  12. AMITRIPTYLINE HCL [Concomitant]
     Active Substance: AMITRIPTYLINE
  13. SULFASALAZINE. [Concomitant]
     Active Substance: SULFASALAZINE
  14. XYREM [Suspect]
     Active Substance: SODIUM OXYBATE
     Dosage: DOSE ADJUSTMENTS
     Route: 048
     Dates: start: 201212, end: 201603
  15. PRAVASTATIN. [Concomitant]
     Active Substance: PRAVASTATIN
  16. VIIBRYD [Concomitant]
     Active Substance: VILAZODONE HYDROCHLORIDE
  17. TOPIRAMATE. [Concomitant]
     Active Substance: TOPIRAMATE
  18. FOLIC ACID. [Concomitant]
     Active Substance: FOLIC ACID
  19. CALTRATE [Concomitant]
     Active Substance: CALCIUM CARBONATE
  20. LYRICA [Concomitant]
     Active Substance: PREGABALIN
  21. NAPROXEN. [Concomitant]
     Active Substance: NAPROXEN
  22. VITAMIN D [Concomitant]
     Active Substance: CHOLECALCIFEROL
  23. DHEA [Concomitant]
     Active Substance: PRASTERONE
  24. RITALIN [Concomitant]
     Active Substance: METHYLPHENIDATE HYDROCHLORIDE
  25. XANAX [Concomitant]
     Active Substance: ALPRAZOLAM
  26. VITAMIN B12 [Concomitant]
     Active Substance: CYANOCOBALAMIN
  27. XYREM [Suspect]
     Active Substance: SODIUM OXYBATE
     Dosage: 4.5 G, BID
     Route: 048
     Dates: start: 201603
  28. LASIX [Concomitant]
     Active Substance: FUROSEMIDE
  29. PENTAZOCINE AND NALOXONE [Concomitant]
     Active Substance: NALOXONE HYDROCHLORIDE\PENTAZOCINE HYDROCHLORIDE
  30. BACLOFEN. [Concomitant]
     Active Substance: BACLOFEN
  31. ALENDRONATE SODIUM. [Concomitant]
     Active Substance: ALENDRONATE SODIUM

REACTIONS (1)
  - Bone disorder [Unknown]
